FAERS Safety Report 7592443-2 (Version None)
Quarter: 2011Q3

REPORT INFORMATION
  Report Type: 
  Country: None (occurrence: None)
  Receive Date: 20110705
  Receipt Date: 20110705
  Transmission Date: 20111222
  Serious: Yes (Other)
  Sender: FDA-Public Use
  Company Number: None

PATIENT
  Sex: Male
  Weight: 139.2543 kg

DRUGS (1)
  1. PRADAXA [Suspect]
     Indication: ATRIAL FIBRILLATION
     Dosage: ONE CAPSULE TWICE DAILY PO ONE DOSE
     Route: 048
     Dates: start: 20101229

REACTIONS (1)
  - NEPHROLITHIASIS [None]
